FAERS Safety Report 8987281 (Version 2)
Quarter: 2013Q1

REPORT INFORMATION
  Report Type: Other
  Country: US (occurrence: US)
  Receive Date: 20121227
  Receipt Date: 20130225
  Transmission Date: 20140127
  Serious: Yes (Death, Hospitalization)
  Sender: FDA-Public Use
  Company Number: US-SHIRE-ALL1-2012-06527

PATIENT
  Sex: Male

DRUGS (2)
  1. FOSRENOL [Suspect]
     Indication: HYPERPHOSPHATAEMIA
     Dosage: 500 MG, 4X/DAY:QID
     Route: 048
  2. FOSRENOL [Suspect]
     Dosage: UNK, UNKNOWN
     Route: 048
     Dates: start: 2008

REACTIONS (5)
  - Cardiac arrest [Fatal]
  - Fall [Recovered/Resolved]
  - Traumatic fracture [Unknown]
  - Pneumonia [Unknown]
  - Fluid overload [Unknown]
